FAERS Safety Report 4918381-9 (Version None)
Quarter: 2006Q1

REPORT INFORMATION
  Report Type: 
  Country: None (occurrence: None)
  Receive Date: 20060214
  Receipt Date: 20060203
  Transmission Date: 20060701
  Serious: Yes (Death)
  Sender: FDA-Public Use
  Company Number: 200610462GDS

PATIENT
  Age: 74 Year
  Sex: Male

DRUGS (16)
  1. CIPROFLOXACIN [Suspect]
     Dosage: INTRAVENOUS
     Route: 042
  2. ALLOPURINOL [Suspect]
  3. CEFAZOLIN [Suspect]
  4. CEFTRIAXONE [Suspect]
  5. CLOXACILLIN SODIUM [Suspect]
  6. VANCOMYCIN [Suspect]
  7. ZYVOX [Suspect]
  8. ASPIRIN [Concomitant]
  9. DOCUSATE SODIUM [Concomitant]
  10. DOXEPIN HYDROCHLORIDE [Concomitant]
  11. FERROUS FUMARATE [Concomitant]
  12. FUROSEMIDE [Concomitant]
  13. HYDROXYUREA [Concomitant]
  14. RANITIDINE [Concomitant]
  15. SIMVASTATIN [Concomitant]
  16. SLOW-K [Concomitant]

REACTIONS (9)
  - BLOOD CREATININE INCREASED [None]
  - CELLULITIS [None]
  - DERMATITIS EXFOLIATIVE [None]
  - PYREXIA [None]
  - RESPIRATORY DISTRESS [None]
  - SEPSIS [None]
  - STAPHYLOCOCCAL INFECTION [None]
  - STRIDOR [None]
  - TOXIC EPIDERMAL NECROLYSIS [None]
